FAERS Safety Report 11050950 (Version 2)
Quarter: 2015Q3

REPORT INFORMATION
  Report Type: Report from Study
  Country: US (occurrence: US)
  Receive Date: 20150421
  Receipt Date: 20150716
  Transmission Date: 20151125
  Serious: Yes (Death)
  Sender: FDA-Public Use
  Company Number: US-SA-2015SA050430

PATIENT
  Age: 81 Year
  Sex: Male
  Weight: 86.18 kg

DRUGS (28)
  1. ALLOPURINOL. [Concomitant]
     Active Substance: ALLOPURINOL
     Dosage: DOSE: ONE-HALF TABLET ORALLY
     Route: 048
  2. METOPROLOL TARTRATE. [Concomitant]
     Active Substance: METOPROLOL TARTRATE
     Indication: BLOOD PRESSURE MEASUREMENT
     Dosage: 50 MG TABLEY: TAKE ONE HALF TABLET TWICE A DAY
     Route: 048
  3. CAMPATH [Suspect]
     Active Substance: ALEMTUZUMAB
     Route: 058
     Dates: start: 20141022, end: 20141024
  4. ACYCLOVIR. [Concomitant]
     Active Substance: ACYCLOVIR
     Indication: ANTIVIRAL PROPHYLAXIS
     Dosage: 200 MG CAPSULES
     Route: 048
  5. ACYCLOVIR. [Concomitant]
     Active Substance: ACYCLOVIR
     Indication: PROPHYLAXIS
     Route: 048
  6. GABAPENTIN. [Concomitant]
     Active Substance: GABAPENTIN
     Indication: NEUROPATHY PERIPHERAL
     Route: 048
  7. ONDANSETRON [Concomitant]
     Active Substance: ONDANSETRON
     Indication: NAUSEA
     Route: 048
  8. ALBUTEROL. [Concomitant]
     Active Substance: ALBUTEROL
     Indication: RESPIRATORY DISORDER
     Dosage: 1 AMPULE IN NEBULIZER ORALLY 4 TIMES A DAY AS NEEDED.
     Route: 055
  9. HYDROXYZINE PAMOATE. [Concomitant]
     Active Substance: HYDROXYZINE PAMOATE
     Indication: PRURITUS
     Dosage: EVERY 6 HR
     Route: 048
  10. INSULIN ASPART [Concomitant]
     Active Substance: INSULIN ASPART
     Indication: DIABETES MELLITUS
     Dosage: 100 UNIT/ML INJECTION, BEFORE MEAL AND BEDTIME
     Route: 058
  11. INSULIN GLARGINE [Concomitant]
     Active Substance: INSULIN GLARGINE
     Indication: DIABETES MELLITUS
     Dosage: 40 UNITS AT BEDTIME
     Route: 058
  12. CAMPATH [Suspect]
     Active Substance: ALEMTUZUMAB
     Route: 058
     Dates: start: 20141014, end: 20141014
  13. AMINOCAPROIC ACID. [Concomitant]
     Active Substance: AMINOCAPROIC ACID
     Indication: GINGIVAL BLEEDING
     Dosage: 1 TEASOONFUL ORALLY EVERY 2 HOUR AS NEEDED.
     Route: 048
  14. FILGRASTIM [Concomitant]
     Active Substance: FILGRASTIM
     Indication: NEUTROPENIA
     Dosage: EVERY 7 DAY
     Route: 058
  15. INSULIN [Concomitant]
     Active Substance: INSULIN NOS
     Indication: DIABETES MELLITUS
     Dosage: 4 INJECTION/DAY
  16. NYSTATIN. [Concomitant]
     Active Substance: NYSTATIN
     Indication: RASH
     Dosage: APPLY SMALL AMOUNT
     Route: 061
  17. ACYCLOVIR. [Concomitant]
     Active Substance: ACYCLOVIR
     Indication: ANTIVIRAL PROPHYLAXIS
     Route: 048
  18. FUROSEMIDE. [Concomitant]
     Active Substance: FUROSEMIDE
     Dosage: EVERY MORNING AND NOON
     Route: 048
  19. METOPROLOL TARTRATE. [Concomitant]
     Active Substance: METOPROLOL TARTRATE
     Indication: CARDIAC DISORDER
     Dosage: 50 MG TABLEY: TAKE ONE HALF TABLET TWICE A DAY
     Route: 048
  20. CAMPATH [Suspect]
     Active Substance: ALEMTUZUMAB
     Route: 058
     Dates: start: 20141020, end: 20141020
  21. ATOVAQUONE. [Concomitant]
     Active Substance: ATOVAQUONE
     Indication: PROPHYLAXIS
     Dosage: 1 TEASPOONFUL ORALLY (750 MG/5 ML SUSP)
     Route: 048
  22. CIPROFLOXACIN HYDROCHLORIDE. [Concomitant]
     Active Substance: CIPROFLOXACIN HYDROCHLORIDE
     Indication: BACTERIAL INFECTION
     Route: 048
  23. FLUCONAZOLE. [Concomitant]
     Active Substance: FLUCONAZOLE
     Indication: ANTIFUNGAL PROPHYLAXIS
     Dosage: ONE HALF TABLET EVERY DAY ORALLY
     Route: 048
  24. ACYCLOVIR. [Concomitant]
     Active Substance: ACYCLOVIR
     Indication: PROPHYLAXIS
     Dosage: 200 MG CAPSULES
     Route: 048
  25. POLYETHYLENE GLYCOL [Concomitant]
     Active Substance: POLYETHYLENE GLYCOLS
     Indication: CONSTIPATION
     Dosage: 17 G CAP FILLED ITO LINE DISSOLVED IN 8 OZ. OF WATER
     Route: 048
  26. TRIMETHOPRIM/SULFAMETHOXAZOLE [Concomitant]
     Indication: PROPHYLAXIS
     Dosage: 400/ 800 MG
     Route: 048
  27. TRIMETHOPRIM/SULFAMETHOXAZOLE [Concomitant]
     Indication: PROPHYLAXIS
     Dosage: 800/160 MG
     Route: 048
  28. CAMPATH [Suspect]
     Active Substance: ALEMTUZUMAB
     Route: 058
     Dates: start: 20141027, end: 20141107

REACTIONS (8)
  - Pyrexia [Unknown]
  - White blood cell count decreased [Fatal]
  - Malaise [Unknown]
  - Hypotension [Unknown]
  - Platelet count decreased [Fatal]
  - Leukopenia [Fatal]
  - Pain [Unknown]
  - Pancytopenia [Fatal]

NARRATIVE: CASE EVENT DATE: 20141014
